FAERS Safety Report 14037379 (Version 4)
Quarter: 2017Q4

REPORT INFORMATION
  Report Type: Spontaneous
  Country: KR (occurrence: KR)
  Receive Date: 20171004
  Receipt Date: 20171206
  Transmission Date: 20180321
  Serious: Yes (Hospitalization, Other)
  Sender: FDA-Public Use
  Company Number: KR-009507513-1708KOR009978

PATIENT
  Age: 24 Year
  Sex: Female
  Weight: 51.9 kg

DRUGS (37)
  1. AMPHOGEL [Concomitant]
     Indication: ABDOMINAL PAIN UPPER
     Dosage: 1 TABLET, THREE TIMES A DAY
     Route: 048
     Dates: start: 20170814, end: 20170822
  2. CYTOSAR U [Concomitant]
     Indication: ACUTE MYELOID LEUKAEMIA
     Dosage: 100 MG, ONCE DAILY
     Route: 042
     Dates: start: 20170814
  3. TRIDOL (TRAMADOL HYDROCHLORIDE) [Concomitant]
     Indication: ANTIINFLAMMATORY THERAPY
     Dosage: 50 MG, ONCE DAILY
     Route: 042
     Dates: start: 20170815, end: 20170815
  4. DICKNOL [Concomitant]
     Indication: ANALGESIC THERAPY
     Dosage: 2 ML (1 AMPLE), ONCE DAILY
     Route: 030
     Dates: start: 20170816, end: 20170816
  5. NOXAFIL [Suspect]
     Active Substance: POSACONAZOLE
     Dosage: 300 MG, ONCE A DAY
     Route: 048
     Dates: start: 20170907, end: 20170918
  6. DICKNOL [Concomitant]
     Indication: ANTIINFLAMMATORY THERAPY
  7. X PAIN [Concomitant]
     Indication: ANTIPYRESIS
  8. TACENOL [Concomitant]
     Indication: ANALGESIC THERAPY
     Dosage: 2 TABLETS, ONCE DAILY
     Route: 048
     Dates: start: 20170828, end: 20170828
  9. FLAGYL (METRONIDAZOLE BENZOATE) [Concomitant]
     Active Substance: METRONIDAZOLE\METRONIDAZOLE HYDROCHLORIDE
     Indication: ANTIBIOTIC THERAPY
     Dosage: 500 MG (1BTL), THREE TIMES A DAY
     Route: 042
     Dates: start: 20170815, end: 20170830
  10. SMECTA [Concomitant]
     Active Substance: MONTMORILLONITE
     Indication: GASTROINTESTINAL DISORDER THERAPY
     Dosage: 3 G, THREE TIMES A DAY
     Route: 048
     Dates: start: 20170815, end: 20170916
  11. DENOGAN [Concomitant]
     Active Substance: PROPACETAMOL HYDROCHLORIDE
     Indication: ANTIPYRESIS
     Dosage: 1 VIAL, ONCE DAILY
     Route: 042
     Dates: start: 20170818, end: 20170818
  12. X PAIN [Concomitant]
     Indication: ANALGESIC THERAPY
     Dosage: 1 TABLET, THREE TIME A DAY
     Route: 048
     Dates: start: 20170820, end: 20170921
  13. NOXAFIL [Suspect]
     Active Substance: POSACONAZOLE
     Indication: ANTIFUNGAL PROPHYLAXIS
     Dosage: 300 MG, TWICE A DAY
     Route: 048
     Dates: start: 20170814, end: 20170814
  14. ZAVEDOS [Concomitant]
     Active Substance: IDARUBICIN
     Indication: ACUTE MYELOID LEUKAEMIA
     Dosage: 17.7 MG, ONCE DAILY
     Route: 042
     Dates: start: 20170814
  15. TACENOL [Concomitant]
     Indication: ANTIINFLAMMATORY THERAPY
     Dosage: 1300 MG, ONCE DAILY
     Route: 048
     Dates: start: 20170815, end: 20170916
  16. DICKNOL [Concomitant]
     Indication: ANTIPYRESIS
  17. DENOGAN [Concomitant]
     Active Substance: PROPACETAMOL HYDROCHLORIDE
     Indication: ANALGESIC THERAPY
     Dosage: 1 VIAL, ONCE DAILY
     Route: 042
     Dates: start: 20170830, end: 20170901
  18. LOPERAMIDE [Concomitant]
     Active Substance: LOPERAMIDE
     Indication: GASTROINTESTINAL DISORDER THERAPY
     Dosage: 2 CAPSULES, ONCE DAILY
     Route: 048
     Dates: start: 20170816, end: 20170902
  19. TASNA [Concomitant]
     Indication: ANTACID THERAPY
     Dosage: 1 TABLET, ONCE DAILY
     Route: 048
     Dates: start: 20170814, end: 20170916
  20. NOXAFIL [Suspect]
     Active Substance: POSACONAZOLE
     Dosage: 300 MG, ONCE A DAY
     Route: 048
     Dates: start: 20170815, end: 20170822
  21. ALOXI [Concomitant]
     Active Substance: PALONOSETRON HYDROCHLORIDE
     Indication: PROPHYLAXIS OF NAUSEA AND VOMITING
     Dosage: 0.25 MG, ONCE DAILY
     Route: 042
     Dates: start: 20170814, end: 20170814
  22. ALOXI [Concomitant]
     Active Substance: PALONOSETRON HYDROCHLORIDE
     Dosage: 0.25 MG, ONCE DAILY
     Route: 042
     Dates: start: 20170816, end: 20170816
  23. DENOGAN [Concomitant]
     Active Substance: PROPACETAMOL HYDROCHLORIDE
     Indication: ANTIINFLAMMATORY THERAPY
     Dosage: 1 G (1 VIAL), ONCE DAILY
     Route: 042
     Dates: start: 20170816, end: 20170816
  24. LASIX [Concomitant]
     Active Substance: FUROSEMIDE
     Dosage: 1 AMPLE, ONCE DAILY
     Route: 042
     Dates: start: 20170829, end: 20170830
  25. TACENOL [Concomitant]
     Dosage: 2 TABLETS, ONCE DAILY
     Route: 048
     Dates: start: 20170914, end: 20170914
  26. TRIDOL (TRAMADOL HYDROCHLORIDE) [Concomitant]
     Indication: ANALGESIC THERAPY
     Dosage: 50 MG (1 AMPLE), TID
     Route: 042
     Dates: start: 20170815, end: 20170823
  27. CITOPCIN (CIPROFLOXACIN HYDROCHLORIDE) [Concomitant]
     Active Substance: CIPROFLOXACIN HYDROCHLORIDE
     Indication: ANTIBIOTIC THERAPY
     Dosage: 2 TABLETS, TWICE A DAY
     Route: 048
     Dates: start: 20170816, end: 20170918
  28. X PAIN [Concomitant]
     Indication: ANTIINFLAMMATORY THERAPY
  29. LASIX [Concomitant]
     Active Substance: FUROSEMIDE
     Indication: DIURETIC THERAPY
     Dosage: 0.5 AMPLE, ONCE DAILY
     Route: 042
     Dates: start: 20170817, end: 20170819
  30. TABAXIN [Concomitant]
     Active Substance: PIPERACILLIN SODIUM\TAZOBACTAM SODIUM
     Indication: ANTIBIOTIC PROPHYLAXIS
     Dosage: 4.5 G (1 VIAL), THREE TIMES A DAY
     Route: 042
     Dates: start: 20170814, end: 20170823
  31. TABAXIN [Concomitant]
     Active Substance: PIPERACILLIN SODIUM\TAZOBACTAM SODIUM
     Dosage: 4.5 G (1 VIAL), THREE TIMES A DAY
     Route: 042
     Dates: start: 20170913, end: 20170917
  32. MACPERAN [Concomitant]
     Active Substance: METOCLOPRAMIDE HYDROCHLORIDE
     Indication: PROPHYLAXIS OF NAUSEA AND VOMITING
     Dosage: 10 MG, THREE TIMES A DAY
     Route: 042
     Dates: start: 20170815, end: 20170815
  33. MACPERAN [Concomitant]
     Active Substance: METOCLOPRAMIDE HYDROCHLORIDE
     Dosage: 1 AMPLE, QID (4 TIMES DAY)
     Route: 042
     Dates: start: 20170815, end: 20170904
  34. LOPERAMIDE [Concomitant]
     Active Substance: LOPERAMIDE
     Dosage: 1 CAPSULE, ONCE DAILY
     Route: 048
     Dates: start: 20170903, end: 20170905
  35. ZYLORIC [Concomitant]
     Active Substance: ALLOPURINOL
     Indication: ANALGESIC THERAPY
     Dosage: 1 TABLET, THREE TIMES A DAY
     Route: 048
     Dates: start: 20170814, end: 20170822
  36. TACENOL [Concomitant]
     Indication: ANTIPYRESIS
     Dosage: 2 TABLETS, ONCE DAILY
     Route: 048
     Dates: start: 20170831, end: 20170831
  37. TRIDOL (TRAMADOL HYDROCHLORIDE) [Concomitant]
     Indication: ACUTE LEUKAEMIA

REACTIONS (5)
  - Arthralgia [Not Recovered/Not Resolved]
  - Pneumonia mycoplasmal [Recovered/Resolved]
  - Prothrombin time prolonged [Recovered/Resolved]
  - Aspartate aminotransferase increased [Unknown]
  - Alanine aminotransferase increased [Unknown]

NARRATIVE: CASE EVENT DATE: 20170821
